FAERS Safety Report 12792889 (Version 1)
Quarter: 2016Q3

REPORT INFORMATION
  Report Type: Spontaneous
  Country: US (occurrence: US)
  Receive Date: 20160929
  Receipt Date: 20160929
  Transmission Date: 20161109
  Serious: No
  Sender: FDA-Public Use
  Company Number: US-JAZZ-2016-US-011574

PATIENT
  Age: 25 Year
  Sex: Male

DRUGS (5)
  1. PROVIGIL [Concomitant]
     Active Substance: MODAFINIL
  2. IBUPROFEN. [Concomitant]
     Active Substance: IBUPROFEN
  3. XYREM [Suspect]
     Active Substance: SODIUM OXYBATE
     Indication: NARCOLEPSY
     Dosage: 2.25 G, BID
     Route: 048
     Dates: start: 201606, end: 201606
  4. XYREM [Suspect]
     Active Substance: SODIUM OXYBATE
     Dosage: 3.75 G, BID
     Route: 048
     Dates: start: 20160619
  5. XYREM [Suspect]
     Active Substance: SODIUM OXYBATE
     Indication: CATAPLEXY
     Dosage: 3 G, BID
     Route: 048
     Dates: start: 201606, end: 20160618

REACTIONS (5)
  - Somnolence [Unknown]
  - Hangover [Unknown]
  - Decreased appetite [Unknown]
  - Dehydration [Unknown]
  - Headache [Unknown]

NARRATIVE: CASE EVENT DATE: 201606
